FAERS Safety Report 6976589-5 (Version None)
Quarter: 2010Q3

REPORT INFORMATION
  Report Type: 
  Country: None (occurrence: None)
  Receive Date: 20100910
  Receipt Date: 20090505
  Transmission Date: 20110219
  Serious: No
  Sender: FDA-Public Use
  Company Number: US-WYE-H09229609

PATIENT
  Age: 51 Year
  Sex: Female
  Weight: 84.44 kg

DRUGS (8)
  1. PRISTIQ [Suspect]
     Indication: DEPRESSION
     Route: 048
     Dates: start: 20090501
  2. VISTARIL [Concomitant]
  3. VAGIFEM [Concomitant]
  4. SINGULAIR [Concomitant]
  5. ASMANEX TWISTHALER [Concomitant]
  6. ESTROGEN NOS [Concomitant]
  7. ABILIFY [Concomitant]
  8. IBUPROFEN [Concomitant]

REACTIONS (6)
  - FEELING HOT [None]
  - HEADACHE [None]
  - HYPERHIDROSIS [None]
  - NAUSEA [None]
  - NERVOUSNESS [None]
  - RESTLESSNESS [None]
